FAERS Safety Report 4564529-8 (Version None)
Quarter: 2005Q1

REPORT INFORMATION
  Report Type: 
  Country: None (occurrence: None)
  Receive Date: 20050128
  Receipt Date: 20050117
  Transmission Date: 20050727
  Serious: Yes (Hospitalization, Other)
  Sender: FDA-Public Use
  Company Number: US-JNJFOC-20040101016

PATIENT
  Sex: Female
  Weight: 51.94 kg

DRUGS (16)
  1. REMICADE [Suspect]
     Route: 042
     Dates: end: 20020201
  2. REMICADE [Suspect]
     Indication: RHEUMATOID ARTHRITIS
     Route: 042
     Dates: end: 20020201
  3. CELEBREX [Concomitant]
  4. FOLIC ACID [Concomitant]
  5. METHOTREXATE [Concomitant]
  6. PREDNISONE [Concomitant]
  7. MEDROXYPROGESTERONE [Concomitant]
  8. ESTRADIOL [Concomitant]
  9. OSCAL [Concomitant]
  10. GERITOL [Concomitant]
  11. FOSAMAX [Concomitant]
  12. LOSEC [Concomitant]
  13. PROTONIX [Concomitant]
  14. PROMETHAZINE [Concomitant]
  15. METOCLOPRAMIDE [Concomitant]
  16. ZOLOFT [Concomitant]

REACTIONS (37)
  - AMNESIA [None]
  - ASTHENIA [None]
  - AUTOIMMUNE DISORDER [None]
  - BLOOD CALCIUM DECREASED [None]
  - BLOOD GLUCOSE DECREASED [None]
  - BURSITIS [None]
  - CARDIOMYOPATHY [None]
  - CHRONIC OBSTRUCTIVE PULMONARY DISEASE [None]
  - CONDITION AGGRAVATED [None]
  - CONTUSION [None]
  - CYST [None]
  - CYTOMEGALOVIRUS ANTIBODY POSITIVE [None]
  - DEPRESSION [None]
  - DRY MOUTH [None]
  - ENCEPHALITIS [None]
  - ENCEPHALOPATHY [None]
  - FALL [None]
  - GASTROINTESTINAL DISORDER [None]
  - GASTROOESOPHAGEAL REFLUX DISEASE [None]
  - INAPPROPRIATE ANTIDIURETIC HORMONE SECRETION [None]
  - LOSS OF CONSCIOUSNESS [None]
  - LUMBAR PUNCTURE ABNORMAL [None]
  - MENINGITIS TUBERCULOUS [None]
  - NAUSEA [None]
  - OEDEMA PERIPHERAL [None]
  - OROPHARYNGEAL SWELLING [None]
  - PEPTIC ULCER [None]
  - PNEUMONITIS [None]
  - RENAL FAILURE [None]
  - RESPIRATORY FAILURE [None]
  - RHEUMATOID ARTHRITIS [None]
  - ROAD TRAFFIC ACCIDENT [None]
  - SICCA SYNDROME [None]
  - SYNCOPE [None]
  - SYSTEMIC LUPUS ERYTHEMATOSUS [None]
  - TREMOR [None]
  - VOMITING [None]
